FAERS Safety Report 13197577 (Version 2)
Quarter: 2018Q1

REPORT INFORMATION
  Report Type: Spontaneous
  Country: US (occurrence: US)
  Receive Date: 20170208
  Receipt Date: 20180207
  Transmission Date: 20180508
  Serious: No
  Sender: FDA-Public Use
  Company Number: US-BAUSCH-BL-2016-013552

PATIENT
  Sex: Female
  Weight: 44.04 kg

DRUGS (5)
  1. FUNGICURE [Suspect]
     Active Substance: TOLNAFTATE
     Indication: ONYCHOMYCOSIS
     Route: 065
     Dates: start: 1997, end: 1997
  2. PENLAC [Suspect]
     Active Substance: CICLOPIROX
     Indication: ONYCHOMYCOSIS
     Route: 061
     Dates: start: 1997, end: 1997
  3. LEVOTHYROXINE. [Concomitant]
     Active Substance: LEVOTHYROXINE
     Indication: HYPOTHYROIDISM
  4. FUNGI NAIL (CLOTRIMAZOLE) [Suspect]
     Active Substance: CLOTRIMAZOLE
     Indication: ONYCHOMYCOSIS
     Route: 065
     Dates: start: 1997, end: 1997
  5. FUNGOID TINCTURE [Suspect]
     Active Substance: MICONAZOLE NITRATE
     Indication: ONYCHOMYCOSIS
     Route: 061
     Dates: start: 1997, end: 1997

REACTIONS (1)
  - Drug ineffective [Unknown]
